FAERS Safety Report 6218484-5 (Version None)
Quarter: 2009Q2

REPORT INFORMATION
  Report Type: 
  Country: None (occurrence: None)
  Receive Date: 20090608
  Receipt Date: 20090601
  Transmission Date: 20091009
  Serious: Yes (Congenital Anomaly)
  Sender: FDA-Public Use
  Company Number: B0576583A

PATIENT
  Weight: 3.64 kg

DRUGS (1)
  1. LAMOTRIGINE [Suspect]
     Dosage: 400MG PER DAY

REACTIONS (2)
  - PATENT DUCTUS ARTERIOSUS [None]
  - PULMONARY VALVE STENOSIS [None]
